FAERS Safety Report 7757638-3 (Version None)
Quarter: 2011Q3

REPORT INFORMATION
  Report Type: 
  Country: None (occurrence: None)
  Receive Date: 20110916
  Receipt Date: 20110903
  Transmission Date: 20111222
  Serious: Yes (Other)
  Sender: FDA-Public Use
  Company Number: PHHY2011BR79146

PATIENT
  Sex: Female

DRUGS (7)
  1. EXFORGE [Suspect]
     Indication: HYPERTENSION
     Dosage: 2 DF (320/10MG) 1 TABLET IN THE MORNIG AND 1 TABLET AT NIGHT
     Route: 048
     Dates: start: 20110829
  2. HYDROCHLOROTHIAZIDE [Concomitant]
     Dosage: 25 MG, UNK
  3. OMEPRAZOLE [Concomitant]
     Dosage: 20 MG, UNK
  4. CARVEDILOL [Concomitant]
     Dosage: 12.5 MG, UNK
  5. BROMAZEPAM [Concomitant]
     Dosage: 3 MG, UNK
  6. LEVOTHYROXINE SODIUM [Concomitant]
     Dosage: 50 MG, UNK
  7. SIMVASTATIN [Concomitant]
     Dosage: 20 MG, UNK

REACTIONS (7)
  - BACK PAIN [None]
  - DYSPEPSIA [None]
  - PNEUMONIA [None]
  - PAIN IN EXTREMITY [None]
  - BLOOD PRESSURE DECREASED [None]
  - SWELLING [None]
  - DIZZINESS [None]
